FAERS Safety Report 23206998 (Version 1)
Quarter: 2023Q4

REPORT INFORMATION
  Report Type: Other
  Country: US (occurrence: US)
  Receive Date: 20231120
  Receipt Date: 20231120
  Transmission Date: 20240110
  Serious: No
  Sender: FDA-Public Use
  Company Number: US-UROVANT SCIENCES GMBH-202309-URV-001813

PATIENT
  Sex: Male

DRUGS (1)
  1. GEMTESA [Suspect]
     Active Substance: VIBEGRON
     Indication: Hypertonic bladder
     Dosage: UNK UNK, QD
     Route: 048

REACTIONS (4)
  - Therapeutic product effect delayed [Unknown]
  - Inability to afford medication [Unknown]
  - Cardiac murmur [Unknown]
  - Localised oedema [Unknown]
